FAERS Safety Report 9410902 (Version 1)
Quarter: 2013Q3

REPORT INFORMATION
  Report Type: Spontaneous
  Country: FR (occurrence: FR)
  Receive Date: 20130719
  Receipt Date: 20130719
  Transmission Date: 20140515
  Serious: Yes (Disabling)
  Sender: FDA-Public Use
  Company Number: FR-GILEAD-2013-0074504

PATIENT
  Age: 35 Year
  Sex: Male

DRUGS (3)
  1. EVIPLERA [Suspect]
     Indication: HIV INFECTION
     Dosage: 1 DF, UNK
     Route: 048
     Dates: start: 20121108, end: 20130201
  2. TRUVADA [Concomitant]
  3. TELZIR [Concomitant]

REACTIONS (4)
  - Myalgia [Recovered/Resolved]
  - Enthesopathy [Recovered/Resolved]
  - Fatigue [Recovered/Resolved]
  - Cell death [Unknown]
